FAERS Safety Report 9440972 (Version 1)
Quarter: 2013Q3

REPORT INFORMATION
  Report Type: Spontaneous
  Country: US (occurrence: None)
  Receive Date: 20130801
  Receipt Date: 20130801
  Transmission Date: 20140515
  Serious: Yes (Hospitalization)
  Sender: FDA-Public Use
  Company Number: JPI-P-033831

PATIENT
  Age: 40 Year
  Sex: Female

DRUGS (1)
  1. XYREM [Suspect]
     Indication: INSOMNIA
     Dosage: 4.5 GM (2.25 GM, 2 IN 1 D) PO
     Route: 048
     Dates: start: 20121105

REACTIONS (4)
  - Dehydration [None]
  - Fatigue [None]
  - Blood potassium abnormal [None]
  - Prealbumin abnormal [None]
